FAERS Safety Report 7731108-0 (Version None)
Quarter: 2011Q3

REPORT INFORMATION
  Report Type: 
  Country: None (occurrence: None)
  Receive Date: 20110906
  Receipt Date: 20110906
  Transmission Date: 20111222
  Serious: Yes (Other)
  Sender: FDA-Public Use
  Company Number: None

PATIENT
  Sex: Female
  Weight: 68.038 kg

DRUGS (1)
  1. NAPROXEN [Suspect]
     Indication: PAIN
     Dosage: 500MG
     Route: 048
     Dates: start: 20110805, end: 20110827

REACTIONS (5)
  - RASH GENERALISED [None]
  - ERYTHEMA [None]
  - AURICULAR SWELLING [None]
  - PRODUCT LABEL ISSUE [None]
  - PHOTOSENSITIVITY REACTION [None]
